FAERS Safety Report 6845439-X (Version None)
Quarter: 2010Q3

REPORT INFORMATION
  Report Type: 
  Country: None (occurrence: None)
  Receive Date: 20100715
  Receipt Date: 20071001
  Transmission Date: 20110219
  Serious: No
  Sender: FDA-Public Use
  Company Number: US-PFIZER INC-2007069783

PATIENT
  Sex: Male
  Weight: 75 kg

DRUGS (5)
  1. CHANTIX [Suspect]
     Indication: SMOKING CESSATION THERAPY
     Dates: start: 20070810
  2. KLONOPIN [Concomitant]
  3. EFFEXOR [Concomitant]
  4. PANADEINE CO [Concomitant]
  5. PREVACID [Concomitant]

REACTIONS (3)
  - DISCOMFORT [None]
  - NECK PAIN [None]
  - PAIN IN EXTREMITY [None]
